FAERS Safety Report 14822345 (Version 3)
Quarter: 2018Q3

REPORT INFORMATION
  Report Type: Report from Study
  Country: US (occurrence: US)
  Receive Date: 20180427
  Receipt Date: 20180703
  Transmission Date: 20181010
  Serious: Yes (Hospitalization)
  Sender: FDA-Public Use
  Company Number: US-ASTRAZENECA-2018SE16922

PATIENT
  Sex: Female
  Weight: 52.6 kg

DRUGS (1)
  1. BYDUREON [Suspect]
     Active Substance: EXENATIDE
     Route: 058

REACTIONS (5)
  - Intestinal obstruction [Unknown]
  - Device malfunction [Unknown]
  - Cataract [Unknown]
  - Pneumonia [Unknown]
  - Influenza [Unknown]
